FAERS Safety Report 6902436-3 (Version None)
Quarter: 2010Q3

REPORT INFORMATION
  Report Type: 
  Country: None (occurrence: None)
  Receive Date: 20100803
  Receipt Date: 20080527
  Transmission Date: 20110219
  Serious: No
  Sender: FDA-Public Use
  Company Number: US-PFIZER INC-2008021531

PATIENT
  Age: 66 Year
  Sex: Male
  Weight: 94.3 kg

DRUGS (6)
  1. LYRICA [Suspect]
     Indication: NEURALGIA
     Dates: start: 20080101
  2. LYRICA [Suspect]
     Indication: PARAESTHESIA
  3. MOBIC [Concomitant]
  4. ACETYLSALICYLIC ACID SRT [Concomitant]
  5. PROTONIX [Concomitant]
  6. ALL OTHER THERAPEUTIC PRODUCTS [Concomitant]

REACTIONS (6)
  - DISTURBANCE IN ATTENTION [None]
  - EUPHORIC MOOD [None]
  - FEELING ABNORMAL [None]
  - MEMORY IMPAIRMENT [None]
  - SEDATION [None]
  - SOMNOLENCE [None]
